FAERS Safety Report 8612495-8 (Version None)
Quarter: 2012Q3

REPORT INFORMATION
  Report Type: 
  Country: None (occurrence: None)
  Receive Date: 20120822
  Receipt Date: 20120813
  Transmission Date: 20120928
  Serious: Yes (Other)
  Sender: FDA-Public Use
  Company Number: US-ASTRAZENECA-2012SE31069

PATIENT
  Age: 64 Year
  Sex: Male
  Weight: 61.2 kg

DRUGS (7)
  1. DOXEPIN [Concomitant]
     Indication: DEPRESSION
     Route: 048
     Dates: start: 19860101
  2. TEMAZEPAM [Concomitant]
     Indication: SLEEP DISORDER
     Route: 048
     Dates: start: 20040101
  3. NEXIUM [Suspect]
     Route: 048
     Dates: start: 20061001
  4. NEXIUM [Suspect]
     Route: 048
     Dates: start: 20061001
  5. BUTALBITAL [Concomitant]
     Indication: MIGRAINE
     Route: 048
     Dates: start: 20040101
  6. NEXIUM [Suspect]
     Indication: THROAT LESION
     Route: 048
     Dates: start: 20041001, end: 20061001
  7. NEXIUM [Suspect]
     Indication: GASTROOESOPHAGEAL REFLUX DISEASE
     Route: 048
     Dates: start: 20041001, end: 20061001

REACTIONS (15)
  - CHOKING [None]
  - MIGRAINE [None]
  - OESOPHAGEAL DISORDER [None]
  - ORAL DISCOMFORT [None]
  - GASTROOESOPHAGEAL REFLUX DISEASE [None]
  - HEPATIC LESION [None]
  - THROAT LESION [None]
  - WEIGHT DECREASED [None]
  - SLEEP DISORDER [None]
  - OFF LABEL USE [None]
  - INTENTIONAL DRUG MISUSE [None]
  - FALL [None]
  - DYSPEPSIA [None]
  - PAIN [None]
  - DRUG INTOLERANCE [None]
